FAERS Safety Report 12511332 (Version 3)
Quarter: 2016Q3

REPORT INFORMATION
  Report Type: Report from Study
  Country: PR (occurrence: PR)
  Receive Date: 20160629
  Receipt Date: 20160810
  Transmission Date: 20161109
  Serious: Yes (Hospitalization, Other)
  Sender: FDA-Public Use
  Company Number: PR-ABBVIE-16K-131-1659678-00

PATIENT
  Age: 42 Year
  Sex: Female
  Weight: 90.8 kg

DRUGS (11)
  1. ASPIRIN. [Concomitant]
     Active Substance: ASPIRIN
     Indication: PRODUCT USED FOR UNKNOWN INDICATION
  2. CALAN [Concomitant]
     Active Substance: VERAPAMIL HYDROCHLORIDE
     Indication: HYPERTENSION
  3. HUMIRA [Suspect]
     Active Substance: ADALIMUMAB
     Route: 058
  4. JANUMET [Concomitant]
     Active Substance: METFORMIN HYDROCHLORIDE\SITAGLIPTIN PHOSPHATE
     Indication: DIABETES MELLITUS
     Dosage: 50 MG/100 MG
     Route: 048
     Dates: start: 201604
  5. METHOTREXATE. [Concomitant]
     Active Substance: METHOTREXATE
     Indication: RHEUMATOID ARTHRITIS
     Dosage: 3 TABLETS, 1 DAILY EVERY 4 DAYS
     Route: 048
  6. FOLIC ACID. [Concomitant]
     Active Substance: FOLIC ACID
     Indication: PRODUCT USED FOR UNKNOWN INDICATION
  7. COZAAR [Concomitant]
     Active Substance: LOSARTAN POTASSIUM
     Indication: HYPERTENSION
  8. LASIX [Concomitant]
     Active Substance: FUROSEMIDE
     Indication: HYPERTENSION
  9. HUMIRA [Suspect]
     Active Substance: ADALIMUMAB
     Indication: RHEUMATOID ARTHRITIS
     Route: 058
     Dates: start: 2005
  10. ZOLOFT [Concomitant]
     Active Substance: SERTRALINE HYDROCHLORIDE
     Indication: PAIN
  11. ASPIRIN. [Concomitant]
     Active Substance: ASPIRIN

REACTIONS (26)
  - Uterine enlargement [Recovered/Resolved]
  - Cyst [Recovered/Resolved]
  - Ischaemic stroke [Recovered/Resolved with Sequelae]
  - Gastrooesophageal reflux disease [Unknown]
  - Acquired cardiac septal defect [Unknown]
  - Diabetes mellitus inadequate control [Recovered/Resolved]
  - Varicose vein [Not Recovered/Not Resolved]
  - Injection site pain [Recovered/Resolved]
  - Hernia [Unknown]
  - Cardiac aneurysm [Unknown]
  - Muscle spasms [Unknown]
  - Uterine leiomyoma [Recovered/Resolved]
  - Headache [Recovered/Resolved]
  - Malaise [Recovered/Resolved]
  - Speech disorder [Recovered/Resolved]
  - Auditory disorder [Recovered/Resolved]
  - Eye swelling [Recovered/Resolved]
  - Blood pressure inadequately controlled [Recovered/Resolved]
  - Post procedural stroke [Recovered/Resolved]
  - Hysterectomy [Recovered/Resolved]
  - Pain in extremity [Unknown]
  - Endometriosis [Recovered/Resolved]
  - Facial paresis [Recovered/Resolved]
  - Dysmenorrhoea [Recovered/Resolved]
  - Abdominal pain [Unknown]
  - Menorrhagia [Recovered/Resolved]

NARRATIVE: CASE EVENT DATE: 2013
